FAERS Safety Report 4450943-8 (Version None)
Quarter: 2004Q3

REPORT INFORMATION
  Report Type: 
  Country: None (occurrence: None)
  Receive Date: 20040916
  Receipt Date: 20031013
  Transmission Date: 20050211
  Serious: Yes (Other)
  Sender: FDA-Public Use
  Company Number: US-BRISTOL-MYERS SQUIBB COMPANY-12417457

PATIENT
  Age: 36 Year
  Sex: Female

DRUGS (11)
  1. STADOL [Suspect]
     Indication: CROHN'S DISEASE
  2. STADOL [Suspect]
     Indication: ABDOMINAL PAIN
  3. COCAINE [Concomitant]
  4. LORCET-HD [Concomitant]
  5. PHENERGAN HCL [Concomitant]
  6. TRAZODONE HCL [Concomitant]
  7. PENTASA [Concomitant]
  8. FLEXERIL [Concomitant]
  9. NORTRIPTYLINE HCL [Concomitant]
  10. HYDROCODONE + ACETAMINOPHEN [Concomitant]
  11. DICYCLOMINE [Concomitant]

REACTIONS (1)
  - DEPENDENCE [None]
